FAERS Safety Report 4290125-6 (Version None)
Quarter: 2004Q1

REPORT INFORMATION
  Report Type: 
  Country: None (occurrence: None)
  Receive Date: 20040209
  Receipt Date: 20040126
  Transmission Date: 20041129
  Serious: Yes (Life-Threatening, Hospitalization)
  Sender: FDA-Public Use
  Company Number: DE-JNJFOC-20040105301

PATIENT
  Age: 8 Month
  Sex: Female
  Weight: 8 kg

DRUGS (3)
  1. TOPAMAX [Suspect]
     Indication: EPILEPSY
     Dosage: 25 MG, 2 IN 1 DAY; ORAL
     Route: 048
     Dates: end: 20040109
  2. FERRO SANOL (DROPS) FERRO-SANOL B DROPS [Concomitant]
  3. VITAMIN D3 (TABLETS) COLECALCIFEROL TABLETS [Concomitant]

REACTIONS (12)
  - APNOEA [None]
  - DIARRHOEA [None]
  - EPILEPSY [None]
  - FLUID INTAKE REDUCED [None]
  - HYPERPYREXIA [None]
  - HYPOVOLAEMIA [None]
  - HYPOXIA [None]
  - INTESTINAL HYPERMOTILITY [None]
  - METABOLIC ACIDOSIS [None]
  - STAPHYLOCOCCAL INFECTION [None]
  - TACHYCARDIA [None]
  - TONIC CONVULSION [None]
